FAERS Safety Report 12632237 (Version 3)
Quarter: 2016Q3

REPORT INFORMATION
  Report Type: Spontaneous
  Country: US (occurrence: US)
  Receive Date: 20160808
  Receipt Date: 20160823
  Transmission Date: 20161109
  Serious: No
  Sender: FDA-Public Use
  Company Number: US-BEH-2016062225

PATIENT
  Age: 70 Year
  Sex: Female
  Weight: 63.96 kg

DRUGS (32)
  1. HIZENTRA [Suspect]
     Active Substance: HUMAN IMMUNOGLOBULIN G
     Indication: IMMUNODEFICIENCY COMMON VARIABLE
     Route: 058
  2. XOLAIR [Concomitant]
     Active Substance: OMALIZUMAB
  3. VITAMIN C [Concomitant]
     Active Substance: ASCORBIC ACID
  4. CENTRUM [Concomitant]
     Active Substance: VITAMINS
  5. CEFDINIR. [Concomitant]
     Active Substance: CEFDINIR
  6. HIZENTRA [Suspect]
     Active Substance: HUMAN IMMUNOGLOBULIN G
     Dosage: UNK
     Route: 058
  7. PREDNISONE. [Concomitant]
     Active Substance: PREDNISONE
  8. ZYRTEC [Concomitant]
     Active Substance: CETIRIZINE HYDROCHLORIDE
  9. MONTELUKAST [Concomitant]
     Active Substance: MONTELUKAST SODIUM
  10. NASONEX [Concomitant]
     Active Substance: MOMETASONE FUROATE
  11. LMX [Concomitant]
     Active Substance: LIDOCAINE
  12. GAS-X [Concomitant]
     Active Substance: DIMETHICONE
  13. ALENDRONATE [Concomitant]
     Active Substance: ALENDRONATE SODIUM
  14. ACETAMINOPHEN. [Concomitant]
     Active Substance: ACETAMINOPHEN
  15. OXYGEN. [Concomitant]
     Active Substance: OXYGEN
  16. DULCOLAX NOS [Concomitant]
     Active Substance: BISACODYL OR DOCUSATE SODIUM
  17. ADVAIR HFA [Concomitant]
     Active Substance: FLUTICASONE PROPIONATE\SALMETEROL XINAFOATE
  18. CITRACAL -VITAMIN D [Concomitant]
  19. XOPENEX [Concomitant]
     Active Substance: LEVALBUTEROL HYDROCHLORIDE
  20. HIZENTRA [Suspect]
     Active Substance: HUMAN IMMUNOGLOBULIN G
     Dosage: UNK
     Route: 058
  21. DIPHENHYDRAMINE. [Concomitant]
     Active Substance: DIPHENHYDRAMINE
  22. LORAZEPAM. [Concomitant]
     Active Substance: LORAZEPAM
  23. HYDROCHLORTHIAZIDE [Concomitant]
     Active Substance: HYDROCHLOROTHIAZIDE
  24. CARTIA XT [Concomitant]
     Active Substance: DILTIAZEM HYDROCHLORIDE
  25. HIZENTRA [Suspect]
     Active Substance: HUMAN IMMUNOGLOBULIN G
     Dosage: 7 G, QW
     Route: 058
     Dates: start: 20150707
  26. EPIPEN [Concomitant]
     Active Substance: EPINEPHRINE
  27. SPIRIVA [Concomitant]
     Active Substance: TIOTROPIUM BROMIDE MONOHYDRATE
  28. ASPIRIN. [Concomitant]
     Active Substance: ASPIRIN
  29. HIZENTRA [Suspect]
     Active Substance: HUMAN IMMUNOGLOBULIN G
     Dosage: UNK
     Route: 058
  30. ESOMPRAZOLE [Concomitant]
     Active Substance: ESOMEPRAZOLE
  31. COD LIVER [Concomitant]
     Active Substance: COD LIVER OIL
  32. MUCINEX [Concomitant]
     Active Substance: GUAIFENESIN

REACTIONS (1)
  - Sinusitis [Recovered/Resolved]

NARRATIVE: CASE EVENT DATE: 20160229
